FAERS Safety Report 19840974 (Version 1)
Quarter: 2021Q3

REPORT INFORMATION
  Report Type: Spontaneous
  Country: US (occurrence: US)
  Receive Date: 20210916
  Receipt Date: 20210916
  Transmission Date: 20211014
  Serious: Yes (Disabling, Other)
  Sender: FDA-Public Use
  Company Number: None

PATIENT
  Age: 29 Year
  Sex: Female
  Weight: 60.75 kg

DRUGS (1)
  1. DYSPORT [Suspect]
     Active Substance: ABOBOTULINUMTOXINA
     Dates: start: 20210222, end: 20210222

REACTIONS (8)
  - Dizziness [None]
  - Fatigue [None]
  - Dyspnoea [None]
  - Visual impairment [None]
  - Dysphagia [None]
  - Influenza like illness [None]
  - Muscular weakness [None]
  - Dry mouth [None]

NARRATIVE: CASE EVENT DATE: 20210222
